FAERS Safety Report 6059709-9 (Version None)
Quarter: 2009Q1

REPORT INFORMATION
  Report Type: 
  Country: None (occurrence: None)
  Receive Date: 20090130
  Receipt Date: 20090123
  Transmission Date: 20090719
  Serious: Yes (Other)
  Sender: FDA-Public Use
  Company Number: CA-ASTRAZENECA-2009UW02319

PATIENT
  Age: 67 Year
  Sex: Female
  Weight: 74.8 kg

DRUGS (3)
  1. SYMBICORT [Suspect]
     Route: 055
     Dates: start: 20050101
  2. SPIRIVA [Concomitant]
     Route: 055
     Dates: start: 20060101
  3. SALBUTAMOL [Concomitant]
     Route: 055

REACTIONS (3)
  - COUGH [None]
  - DRUG INEFFECTIVE [None]
  - DYSPNOEA [None]
